FAERS Safety Report 9195976 (Version 1)
Quarter: 2013Q1

REPORT INFORMATION
  Report Type: Spontaneous
  Country: US (occurrence: US)
  Receive Date: 20130328
  Receipt Date: 20130328
  Transmission Date: 20140127
  Serious: Yes (Other)
  Sender: FDA-Public Use
  Company Number: PHEH2013US006973

PATIENT
  Sex: Female

DRUGS (4)
  1. DIOVAN HCT [Suspect]
  2. METFORMIN [Concomitant]
  3. LANTUS [Concomitant]
  4. PRADAXA [Concomitant]

REACTIONS (1)
  - Staphylococcal infection [Unknown]
